FAERS Safety Report 7730358-7 (Version None)
Quarter: 2011Q3

REPORT INFORMATION
  Report Type: 
  Country: None (occurrence: None)
  Receive Date: 20110906
  Receipt Date: 20110615
  Transmission Date: 20111222
  Serious: No
  Sender: FDA-Public Use
  Company Number: US-GLAXOSMITHKLINE-A0931615A

PATIENT
  Age: 50 Year
  Sex: Female

DRUGS (7)
  1. LAMICTAL [Suspect]
     Indication: BIPOLAR DISORDER
     Dosage: 100MG PER DAY
     Route: 048
     Dates: start: 20110101
  2. VITAMIN D [Concomitant]
  3. ASPIRIN [Concomitant]
  4. PROAIR HFA [Concomitant]
  5. VITAMIN B-12 [Concomitant]
  6. ABILIFY [Concomitant]
  7. LEVOTHYROXINE SODIUM [Concomitant]

REACTIONS (2)
  - WEIGHT INCREASED [None]
  - THERAPEUTIC RESPONSE UNEXPECTED [None]
